FAERS Safety Report 22192739 (Version 6)
Quarter: 2024Q1

REPORT INFORMATION
  Report Type: Spontaneous
  Country: US (occurrence: US)
  Receive Date: 20230410
  Receipt Date: 20240115
  Transmission Date: 20240409
  Serious: Yes (Hospitalization, Other)
  Sender: FDA-Public Use
  Company Number: US-BIOVITRUM-2023-US-008631

PATIENT
  Age: 75 Year
  Sex: Female

DRUGS (2)
  1. DOPTELET [Suspect]
     Active Substance: AVATROMBOPAG MALEATE
     Indication: Immune thrombocytopenia
     Dosage: ONCE DAILY
     Route: 048
     Dates: start: 20230307
  2. DOPTELET [Suspect]
     Active Substance: AVATROMBOPAG MALEATE
     Indication: Tooth extraction
     Route: 048

REACTIONS (5)
  - Loss of consciousness [Recovered/Resolved]
  - Encephalopathy [Recovered/Resolved]
  - Venous thrombosis [Recovered/Resolved]
  - Product use issue [Recovered/Resolved]
  - Product packaging issue [Recovered/Resolved]

NARRATIVE: CASE EVENT DATE: 20230501
